FAERS Safety Report 15576532 (Version 3)
Quarter: 2018Q4

REPORT INFORMATION
  Report Type: Spontaneous
  Country: US (occurrence: US)
  Receive Date: 20181101
  Receipt Date: 20181112
  Transmission Date: 20190205
  Serious: Yes (Hospitalization, Other)
  Sender: FDA-Public Use
  Company Number: US-PFIZER INC-2018442110

PATIENT
  Age: 62 Year
  Sex: Female
  Weight: 73.92 kg

DRUGS (6)
  1. ZOLEDRONIC ACID [Concomitant]
     Active Substance: ZOLEDRONIC ACID
     Indication: NEOPLASM MALIGNANT
     Dosage: UNK
     Dates: start: 201801, end: 201804
  2. XGEVA [Concomitant]
     Active Substance: DENOSUMAB
     Indication: NEOPLASM MALIGNANT
     Dosage: UNK [EVERY 28 DAYS]
     Route: 058
     Dates: start: 201806
  3. IBRANCE [Suspect]
     Active Substance: PALBOCICLIB
     Indication: BREAST CANCER FEMALE
     Dosage: 125 MG, CYCLIC [ONCE DAILY FOR 21 DAYS EVERY 28 DAYS]
     Route: 048
     Dates: start: 201801
  4. LETROZOLE. [Concomitant]
     Active Substance: LETROZOLE
     Indication: NEOPLASM MALIGNANT
     Dosage: 2.5 MG, 1X/DAY
     Route: 048
     Dates: start: 201801
  5. IBRANCE [Suspect]
     Active Substance: PALBOCICLIB
     Indication: BREAST CANCER METASTATIC
     Dosage: 125 MG, UNK
  6. IBRANCE [Suspect]
     Active Substance: PALBOCICLIB
     Dosage: 100 MG, CYCLIC (FOR 21 DAYS AND OFF 7 DAYS)
     Route: 048
     Dates: start: 20181016

REACTIONS (8)
  - Spinal fracture [Unknown]
  - Infection [Unknown]
  - Toothache [Recovered/Resolved]
  - Cystitis [Recovered/Resolved]
  - Tooth infection [Recovered/Resolved]
  - Tooth disorder [Recovered/Resolved]
  - Femur fracture [Unknown]
  - Neutrophil count decreased [Unknown]

NARRATIVE: CASE EVENT DATE: 2017
